FAERS Safety Report 25547358 (Version 1)
Quarter: 2025Q3

REPORT INFORMATION
  Report Type: Spontaneous
  Country: EU (occurrence: EU)
  Receive Date: 20250714
  Receipt Date: 20250714
  Transmission Date: 20251021
  Serious: Yes (Other)
  Sender: ROCHE
  Company Number: EU-ROCHE-10000335216

PATIENT
  Age: 41 Year
  Sex: Female

DRUGS (3)
  1. RISDIPLAM [Suspect]
     Active Substance: RISDIPLAM
     Indication: Spinal muscular atrophy
     Route: 065
  2. DEXAMETHASONE [Concomitant]
     Active Substance: DEXAMETHASONE
     Indication: Pain
  3. FENTANYL [Concomitant]
     Active Substance: FENTANYL

REACTIONS (1)
  - Periprosthetic metallosis [Unknown]
